FAERS Safety Report 10131014 (Version 2)
Quarter: 2014Q2

REPORT INFORMATION
  Report Type: Spontaneous
  Country: US (occurrence: US)
  Receive Date: 20140428
  Receipt Date: 20140527
  Transmission Date: 20141212
  Serious: No
  Sender: FDA-Public Use
  Company Number: US-009507513-1404USA003331

PATIENT
  Age: 61 Year
  Sex: Female
  Weight: 64.85 kg

DRUGS (4)
  1. CLARITIN [Suspect]
     Indication: RHINORRHOEA
     Dosage: 10 MG, QD
     Route: 048
     Dates: start: 20140215, end: 20140315
  2. CLARITIN [Suspect]
     Indication: HYPERSENSITIVITY
  3. MOVICOL [Concomitant]
     Indication: GASTRIC BYPASS
     Dosage: UNK, UNKNOWN
  4. INSULIN [Concomitant]
     Indication: GLUCOSE TOLERANCE IMPAIRED
     Dosage: UNK, UNKNOWN

REACTIONS (1)
  - Drug ineffective [Unknown]
